FAERS Safety Report 22116312 (Version 1)
Quarter: 2023Q1

REPORT INFORMATION
  Report Type: Spontaneous
  Country: CA (occurrence: CA)
  Receive Date: 20230320
  Receipt Date: 20230320
  Transmission Date: 20230417
  Serious: Yes (Other)
  Sender: FDA-Public Use
  Company Number: CA-MYLANLABS-2023M1029287

PATIENT
  Age: 60 Year
  Sex: Male

DRUGS (1)
  1. CAMPRAL [Suspect]
     Active Substance: ACAMPROSATE CALCIUM
     Indication: Alcohol use disorder
     Dosage: 3 DOSAGE FORM, QD (3 EVERY 1 DAYS)
     Route: 048

REACTIONS (1)
  - Motor dysfunction [Recovering/Resolving]
